FAERS Safety Report 24356623 (Version 1)
Quarter: 2024Q3

REPORT INFORMATION
  Report Type: Spontaneous
  Country: IT (occurrence: IT)
  Receive Date: 20240924
  Receipt Date: 20240924
  Transmission Date: 20241017
  Serious: Yes (Other)
  Sender: HIKMA
  Company Number: IT-HIKMA PHARMACEUTICALS USA INC.-IT-H14001-24-06854

PATIENT
  Age: 52 Year
  Sex: Male

DRUGS (13)
  1. DOCETAXEL [Suspect]
     Active Substance: DOCETAXEL\DOCETAXEL ANHYDROUS
     Indication: Adenocarcinoma gastric
     Dosage: UNKNOWN, NINE CYCLES (FLOT)
     Route: 065
     Dates: start: 201907
  2. DOCETAXEL [Suspect]
     Active Substance: DOCETAXEL\DOCETAXEL ANHYDROUS
     Indication: Metastases to liver
  3. FLUOROURACIL [Suspect]
     Active Substance: FLUOROURACIL
     Dosage: UNKNOWN (FOLFOX)
     Route: 065
     Dates: start: 202003, end: 202007
  4. FLUOROURACIL [Suspect]
     Active Substance: FLUOROURACIL
     Indication: Metastases to liver
     Dosage: UNKNOWN, NINE CYCLES (FLOT)
     Route: 065
     Dates: start: 201907
  5. FLUOROURACIL [Suspect]
     Active Substance: FLUOROURACIL
     Dosage: UNKNOWN, RESUMED (DE GRAMONT SCHEME)
     Route: 065
     Dates: start: 202007
  6. FLUOROURACIL [Suspect]
     Active Substance: FLUOROURACIL
     Indication: Adenocarcinoma gastric
     Dosage: UNKNOWN, THREE CYCLES (DE GRAMONT SCHEME)
     Route: 065
     Dates: start: 202001, end: 2020
  7. LEUCOVORIN [Suspect]
     Active Substance: LEUCOVORIN\LEUCOVORIN CALCIUM
     Indication: Metastases to liver
     Dosage: UNKNOWN
     Route: 065
     Dates: start: 202003, end: 202007
  8. LEUCOVORIN [Suspect]
     Active Substance: LEUCOVORIN\LEUCOVORIN CALCIUM
     Dosage: UNKNOWN, RESUMED (DE GRAMONT SCHEME)
     Route: 065
     Dates: start: 202007
  9. LEUCOVORIN [Suspect]
     Active Substance: LEUCOVORIN\LEUCOVORIN CALCIUM
     Indication: Adenocarcinoma gastric
     Dosage: UNKNOWN, THREE CYCLES (DE GRAMONT SCHEME)
     Route: 065
     Dates: start: 202001
  10. LEUCOVORIN [Suspect]
     Active Substance: LEUCOVORIN\LEUCOVORIN CALCIUM
     Indication: Adenocarcinoma gastric
     Dosage: UNKNOWN, NINE CYCLES (FLOT)
     Route: 065
     Dates: start: 201907
  11. LEUCOVORIN [Suspect]
     Active Substance: LEUCOVORIN\LEUCOVORIN CALCIUM
     Indication: Metastases to liver
  12. OXALIPLATIN [Suspect]
     Active Substance: OXALIPLATIN
     Indication: Adenocarcinoma gastric
     Dosage: UNKNOWN
     Route: 065
     Dates: start: 202003, end: 202007
  13. OXALIPLATIN [Suspect]
     Active Substance: OXALIPLATIN
     Indication: Metastases to liver
     Dosage: NINE CYCLES (FLOT)
     Route: 065
     Dates: start: 201907

REACTIONS (4)
  - Gastric varices [Unknown]
  - Portal hypertension [Unknown]
  - Liver injury [Unknown]
  - Portal hypertensive gastropathy [Unknown]

NARRATIVE: CASE EVENT DATE: 20230101
